FAERS Safety Report 6376146-8 (Version None)
Quarter: 2009Q3

REPORT INFORMATION
  Report Type: 
  Country: None (occurrence: None)
  Receive Date: 20090921
  Receipt Date: 20090907
  Transmission Date: 20100115
  Serious: Yes (Hospitalization)
  Sender: FDA-Public Use
  Company Number: 1000008866

PATIENT
  Age: 88 Year
  Sex: Male

DRUGS (5)
  1. MEMANTINE HCL [Suspect]
     Dosage: 2 DOSAGE FORMS (1 DOSAGE FORMS, 2 IN 1 D), ORAL
     Route: 048
     Dates: start: 20040101, end: 20090721
  2. TRIVASTAL (TABLETS) [Suspect]
     Indication: TREMOR
     Dosage: 50 MG (50 MG, 1 IN 1 D), ORAL
     Route: 048
     Dates: start: 20020101, end: 20090721
  3. EXELON [Suspect]
     Dosage: 12 MG (6 MG, 2 IN 1 D), ORAL
     Route: 048
     Dates: start: 20060101, end: 20090721
  4. KARDEGIC (POWDER) [Concomitant]
  5. DOLIPRANE [Concomitant]

REACTIONS (3)
  - BUNDLE BRANCH BLOCK LEFT [None]
  - BUNDLE BRANCH BLOCK RIGHT [None]
  - MALAISE [None]
